FAERS Safety Report 19266750 (Version 1)
Quarter: 2021Q2

REPORT INFORMATION
  Report Type: Other
  Country: IT (occurrence: IT)
  Receive Date: 20210518
  Receipt Date: 20210518
  Transmission Date: 20210717
  Serious: Yes (Hospitalization)
  Sender: FDA-Public Use
  Company Number: IT-CELLTRION INC.-2021IT006317

PATIENT

DRUGS (1)
  1. TRUXIMA [Suspect]
     Active Substance: RITUXIMAB-ABBS
     Indication: MANTLE CELL LYMPHOMA
     Dosage: 750 MG, CYCLIC
     Route: 042
     Dates: start: 20201201, end: 20201224

REACTIONS (3)
  - Rash [Recovered/Resolved]
  - Hyperpyrexia [Recovered/Resolved]
  - Off label use [Unknown]

NARRATIVE: CASE EVENT DATE: 20201201
